FAERS Safety Report 23237860 (Version 3)
Quarter: 2024Q1

REPORT INFORMATION
  Report Type: Spontaneous
  Country: US (occurrence: US)
  Receive Date: 20231128
  Receipt Date: 20240112
  Transmission Date: 20240409
  Serious: Yes (Hospitalization, Other)
  Sender: FDA-Public Use
  Company Number: US-BRISTOL-MYERS SQUIBB COMPANY-2023-170799

PATIENT
  Age: 73 Year
  Sex: Female
  Weight: 72.57 kg

DRUGS (2)
  1. REVLIMID [Suspect]
     Active Substance: LENALIDOMIDE
     Indication: Plasma cell myeloma
     Dosage: FREQUENCY: 2 WEEKS ON, 1 WEEK OFF
     Route: 048
  2. REVLIMID [Suspect]
     Active Substance: LENALIDOMIDE
     Dosage: FREQUENCY: 2 WEEKS ON, 1 WEEK OFF
     Route: 048

REACTIONS (9)
  - Nausea [Unknown]
  - Vomiting [Unknown]
  - Diarrhoea [Unknown]
  - Dehydration [Unknown]
  - Malaise [Unknown]
  - Off label use [Unknown]
  - Blood electrolytes decreased [Unknown]
  - Cellulitis [Unknown]
  - Weight increased [Unknown]
